FAERS Safety Report 6999580-1 (Version None)
Quarter: 2010Q3

REPORT INFORMATION
  Report Type: 
  Country: None (occurrence: None)
  Receive Date: 20100920
  Receipt Date: 20071220
  Transmission Date: 20110219
  Serious: Yes (Other)
  Sender: FDA-Public Use
  Company Number: US-ASTRAZENECA-2006UW22903

PATIENT
  Age: 19047 Day
  Sex: Male
  Weight: 132.9 kg

DRUGS (14)
  1. SEROQUEL [Suspect]
     Indication: SCHIZOPHRENIA
     Dosage: 200 MG TO 300 MG EVERY NIGHT
     Route: 048
     Dates: start: 19990802
  2. SEROQUEL [Suspect]
     Indication: DEPRESSION
     Dosage: 200 MG TO 300 MG EVERY NIGHT
     Route: 048
     Dates: start: 19990802
  3. SEROQUEL [Suspect]
     Indication: BIPOLAR DISORDER
     Dosage: 200 MG TO 300 MG EVERY NIGHT
     Route: 048
     Dates: start: 19990802
  4. SEROQUEL [Suspect]
     Route: 048
     Dates: start: 20000501, end: 20040101
  5. SEROQUEL [Suspect]
     Route: 048
     Dates: start: 20000501, end: 20040101
  6. SEROQUEL [Suspect]
     Route: 048
     Dates: start: 20000501, end: 20040101
  7. WELLBUTRIN SR [Concomitant]
     Dates: start: 19990802
  8. DEPAKOTE [Concomitant]
     Dates: start: 19990802
  9. KLONOPIN [Concomitant]
     Dates: start: 19990802
  10. FLEXERIL [Concomitant]
     Dates: start: 19990802
  11. PRILOSEC [Concomitant]
     Route: 048
     Dates: start: 19990802
  12. NAPROSYN [Concomitant]
     Indication: PAIN
     Route: 048
     Dates: start: 20020225
  13. LIPITOR [Concomitant]
     Indication: BLOOD CHOLESTEROL INCREASED
     Dates: start: 20020311
  14. BEXTRA [Concomitant]
     Dates: start: 20040113

REACTIONS (4)
  - DIABETES MELLITUS [None]
  - DIABETIC KETOACIDOSIS [None]
  - TYPE 1 DIABETES MELLITUS [None]
  - TYPE 2 DIABETES MELLITUS [None]
